FAERS Safety Report 24210865 (Version 1)
Quarter: 2024Q3

REPORT INFORMATION
  Report Type: Spontaneous
  Country: US (occurrence: None)
  Receive Date: 20240814
  Receipt Date: 20240814
  Transmission Date: 20241016
  Serious: Yes (Hospitalization)
  Sender: Public
  Company Number: None

PATIENT
  Sex: Female

DRUGS (9)
  1. CAPECITABINE [Suspect]
     Active Substance: CAPECITABINE
     Indication: Breast cancer female
  2. ELIOUIS [Concomitant]
  3. FOLIC ACID [Concomitant]
     Active Substance: FOLIC ACID
  4. GABAPENTIN [Concomitant]
     Active Substance: GABAPENTIN
  5. IBRANCE [Concomitant]
     Active Substance: PALBOCICLIB
  6. LETROZOLE [Concomitant]
     Active Substance: LETROZOLE
  7. MORPHINE SUL TAB [Concomitant]
  8. ONDANSETRON TAB [Concomitant]
  9. OXYCODONE [Concomitant]
     Active Substance: OXYCODONE

REACTIONS (2)
  - Thrombosis [None]
  - Back pain [None]
